FAERS Safety Report 4558588-6 (Version None)
Quarter: 2005Q1

REPORT INFORMATION
  Report Type: 
  Country: None (occurrence: None)
  Receive Date: 20050121
  Receipt Date: 20050104
  Transmission Date: 20050727
  Serious: Yes (Hospitalization)
  Sender: FDA-Public Use
  Company Number: CA-ROCHE-391369

PATIENT
  Age: 74 Year
  Sex: Female
  Weight: 52.3 kg

DRUGS (7)
  1. CAPECITABINE [Suspect]
     Route: 048
     Dates: start: 20041207, end: 20041227
  2. ERLOTINIB [Suspect]
     Route: 048
     Dates: start: 20041207, end: 20041219
  3. LOPERAMIDE HCL [Concomitant]
     Dates: start: 20041217
  4. VERAPAMIL [Concomitant]
     Dosage: LONG TERM TREATMENT.
  5. LORAZEPAM [Concomitant]
     Dates: start: 20040615
  6. METOCLOPRAMIDE [Concomitant]
     Dates: start: 20041015
  7. LOSEC [Concomitant]
     Dosage: LONG TERM TREATMENT.

REACTIONS (3)
  - DEHYDRATION [None]
  - DIARRHOEA [None]
  - HYPONATRAEMIA [None]
